FAERS Safety Report 10709259 (Version 2)
Quarter: 2015Q1

REPORT INFORMATION
  Report Type: Spontaneous
  Country: RU (occurrence: RU)
  Receive Date: 20150114
  Receipt Date: 20150120
  Transmission Date: 20150721
  Serious: Yes (Other)
  Sender: FDA-Public Use
  Company Number: RU-ROCHE-1521210

PATIENT
  Sex: Male

DRUGS (4)
  1. ETOPOSIDE. [Concomitant]
     Active Substance: ETOPOSIDE
  2. CARBOPLATIN. [Concomitant]
     Active Substance: CARBOPLATIN
     Indication: LUNG NEOPLASM MALIGNANT
  3. TAXOTERE [Concomitant]
     Active Substance: DOCETAXEL
     Indication: LUNG NEOPLASM MALIGNANT
  4. AVASTIN [Suspect]
     Active Substance: BEVACIZUMAB
     Indication: LUNG NEOPLASM MALIGNANT
     Dosage: FOR A YEAR
     Route: 065
     Dates: start: 201406

REACTIONS (3)
  - Tachycardia [Recovered/Resolved]
  - Disease progression [Not Recovered/Not Resolved]
  - Dyspnoea [Recovered/Resolved]
